FAERS Safety Report 10507861 (Version 3)
Quarter: 2014Q4

REPORT INFORMATION
  Report Type: Spontaneous
  Country: US (occurrence: US)
  Receive Date: 20141009
  Receipt Date: 20141022
  Transmission Date: 20150528
  Serious: Yes (Other)
  Sender: FDA-Public Use
  Company Number: US-009507513-1410USA003722

PATIENT
  Age: 19 Year
  Sex: Female
  Weight: 92.52 kg

DRUGS (1)
  1. IMPLANON [Suspect]
     Active Substance: ETONOGESTREL
     Indication: CONTRACEPTION
     Dosage: 1 ROD; UNK
     Route: 059
     Dates: start: 2012

REACTIONS (5)
  - Drug dose omission [Unknown]
  - Abortion induced [Recovering/Resolving]
  - Medical device complication [Not Recovered/Not Resolved]
  - Unintended pregnancy [Recovered/Resolved]
  - Medical device complication [Not Recovered/Not Resolved]

NARRATIVE: CASE EVENT DATE: 2012
